FAERS Safety Report 12395067 (Version 9)
Quarter: 2019Q2

REPORT INFORMATION
  Report Type: Report from Study
  Country: US (occurrence: US)
  Receive Date: 20160523
  Receipt Date: 20190425
  Transmission Date: 20190711
  Serious: Yes (Death, Hospitalization)
  Sender: FDA-Public Use
  Company Number: US-ACTELION-A-US2016-132323

PATIENT
  Age: 53 Year
  Sex: Female
  Weight: 68.03 kg

DRUGS (5)
  1. SILDENAFIL. [Concomitant]
     Active Substance: SILDENAFIL
  2. CARDIZEM CD [Concomitant]
     Active Substance: DILTIAZEM HYDROCHLORIDE
  3. TRACLEER [Suspect]
     Active Substance: BOSENTAN
     Dosage: 62.5 MG, BID
     Route: 048
     Dates: start: 20160211
  4. TRACLEER [Suspect]
     Active Substance: BOSENTAN
     Indication: PULMONARY HYPERTENSION
     Dosage: 125 MG,BID
     Route: 048
  5. OXYGEN. [Concomitant]
     Active Substance: OXYGEN
     Dosage: 8 LITERS

REACTIONS (27)
  - White blood cell count increased [Unknown]
  - Pericardial effusion [Unknown]
  - Pulmonary arterial hypertension [Unknown]
  - Hypotension [Unknown]
  - Dyspnoea exertional [Unknown]
  - Respiratory distress [Unknown]
  - Dizziness [Unknown]
  - Upper respiratory tract infection [Unknown]
  - Dyspnoea at rest [Unknown]
  - Death [Fatal]
  - Lung disorder [Unknown]
  - Asthenia [Unknown]
  - Chronic obstructive pulmonary disease [Unknown]
  - Chest pain [Unknown]
  - Pneumonia [Unknown]
  - Emphysema [Unknown]
  - Lethargy [Unknown]
  - Palpitations [Unknown]
  - Aspiration [Unknown]
  - Sarcoidosis [Unknown]
  - Pleural effusion [Unknown]
  - Dyspnoea [Unknown]
  - Condition aggravated [Unknown]
  - Product dose omission [Unknown]
  - Cardiac failure congestive [Unknown]
  - Syncope [Unknown]
  - Fatigue [Unknown]

NARRATIVE: CASE EVENT DATE: 20160706
